FAERS Safety Report 25864064 (Version 1)
Quarter: 2025Q3

REPORT INFORMATION
  Report Type: Spontaneous
  Country: US (occurrence: None)
  Receive Date: 20250930
  Receipt Date: 20250930
  Transmission Date: 20251021
  Serious: No
  Sender: ALKERMES
  Company Number: US-ALKERMES INC.-ALK-2025-002580

PATIENT
  Sex: Male
  Weight: 45.805 kg

DRUGS (4)
  1. VIVITROL [Suspect]
     Active Substance: NALTREXONE
     Indication: Depression
  2. VIVITROL [Suspect]
     Active Substance: NALTREXONE
     Indication: Anxiety
  3. ZOLOFT [Concomitant]
     Active Substance: SERTRALINE HYDROCHLORIDE
     Indication: Product used for unknown indication
     Route: 065
  4. NORDITROPIN [Concomitant]
     Active Substance: SOMATROPIN
     Indication: Blood growth hormone
     Route: 065

REACTIONS (2)
  - Off label use [Unknown]
  - Somnolence [Unknown]

NARRATIVE: CASE EVENT DATE: 20250101
